FAERS Safety Report 10102348 (Version 1)
Quarter: 2014Q2

REPORT INFORMATION
  Report Type: Spontaneous
  Country: US (occurrence: US)
  Receive Date: 20140424
  Receipt Date: 20140424
  Transmission Date: 20141212
  Serious: No
  Sender: FDA-Public Use
  Company Number: US-009507513-1403USA006048

PATIENT
  Age: 4 Year
  Sex: Female

DRUGS (1)
  1. CLARITIN CHEWABLE TABLETS [Suspect]
     Indication: PRODUCT USED FOR UNKNOWN INDICATION
     Dosage: 50 MG, ONCE
     Route: 048
     Dates: start: 20140307, end: 20140307

REACTIONS (2)
  - Overdose [Unknown]
  - Accidental exposure to product by child [Unknown]
